FAERS Safety Report 4410519-5 (Version None)
Quarter: 2004Q3

REPORT INFORMATION
  Report Type: 
  Country: None (occurrence: None)
  Receive Date: 20040728
  Receipt Date: 20040728
  Transmission Date: 20050211
  Serious: Yes (Life-Threatening)
  Sender: FDA-Public Use
  Company Number: None

PATIENT
  Sex: Female
  Weight: 62.5964 kg

DRUGS (2)
  1. ISOSORBIDE MN 60 MG 59930-1549-01 [Suspect]
     Indication: HYPERTENSION
     Dosage: 60 MG PO DAILY
     Route: 048
  2. IMDUR [Suspect]

REACTIONS (2)
  - HYPERTENSION [None]
  - PHARMACEUTICAL PRODUCT COMPLAINT [None]
